FAERS Safety Report 7785375-8 (Version None)
Quarter: 2011Q3

REPORT INFORMATION
  Report Type: 
  Country: None (occurrence: None)
  Receive Date: 20110929
  Receipt Date: 20110923
  Transmission Date: 20111222
  Serious: Yes (Death, Other)
  Sender: FDA-Public Use
  Company Number: US-CELGENEUS-163-21880-11092950

PATIENT
  Age: 48 Year
  Sex: Female

DRUGS (16)
  1. VELCADE [Concomitant]
     Indication: MULTIPLE MYELOMA
     Route: 065
     Dates: start: 20100701, end: 20101101
  2. DECADRON [Concomitant]
     Indication: MULTIPLE MYELOMA
     Route: 065
     Dates: start: 20100701, end: 20101101
  3. DECADRON [Concomitant]
     Route: 065
     Dates: start: 20110501, end: 20110601
  4. DURAGESIC-100 [Concomitant]
     Route: 065
  5. PRILOSEC [Concomitant]
     Route: 065
  6. PROVERA [Concomitant]
     Route: 065
  7. EFFEXOR [Concomitant]
     Route: 065
  8. ZYLOPRIM [Concomitant]
     Route: 065
  9. REVLIMID [Suspect]
     Indication: MULTIPLE MYELOMA
     Route: 048
     Dates: start: 20100701, end: 20101101
  10. VELCADE [Concomitant]
     Route: 065
     Dates: start: 20110501, end: 20110601
  11. DILAUDID [Concomitant]
     Route: 065
  12. LOVENOX [Concomitant]
     Route: 065
  13. ZOVIRAX [Concomitant]
     Route: 065
  14. REVLIMID [Suspect]
     Dosage: 10 MILLIGRAM
     Route: 048
     Dates: start: 20110501, end: 20110601
  15. XANAX [Concomitant]
     Route: 065
  16. ZOFRAN [Concomitant]
     Route: 065

REACTIONS (2)
  - MULTIPLE MYELOMA [None]
  - DEATH [None]
